FAERS Safety Report 8000819-4 (Version None)
Quarter: 2011Q4

REPORT INFORMATION
  Report Type: 
  Country: None (occurrence: None)
  Receive Date: 20111123
  Receipt Date: 20110803
  Transmission Date: 20120403
  Serious: Yes (Other)
  Sender: FDA-Public Use
  Company Number: 333120

PATIENT
  Sex: Female

DRUGS (1)
  1. VICTOZA [Suspect]
     Indication: PRODUCT USED FOR UNKNOWN INDICATION
     Dosage: SUBCUTANEOUS
     Route: 058
     Dates: start: 20110401, end: 20110701

REACTIONS (2)
  - NEPHROLITHIASIS [None]
  - PANCREATITIS [None]
